FAERS Safety Report 15059642 (Version 2)
Quarter: 2019Q3

REPORT INFORMATION
  Report Type: Spontaneous
  Country: US (occurrence: US)
  Receive Date: 20180625
  Receipt Date: 20190708
  Transmission Date: 20191004
  Serious: No
  Sender: FDA-Public Use
  Company Number: US-SA-2018SA162047

PATIENT
  Age: 24 Year
  Sex: Male

DRUGS (3)
  1. DUPIXENT [Suspect]
     Active Substance: DUPILUMAB
     Dosage: 300 MG, QOW
     Route: 058
     Dates: end: 20190623
  2. DUPIXENT [Suspect]
     Active Substance: DUPILUMAB
     Indication: DERMATITIS ATOPIC
     Dosage: 300 MG, QOW
     Dates: start: 20170711
  3. DUPIXENT [Suspect]
     Active Substance: DUPILUMAB
     Dosage: 300 MG, QOW
     Route: 058

REACTIONS (12)
  - Condition aggravated [Not Recovered/Not Resolved]
  - Discomfort [Not Recovered/Not Resolved]
  - Sleep disorder [Not Recovered/Not Resolved]
  - Nausea [Not Recovered/Not Resolved]
  - Lethargy [Not Recovered/Not Resolved]
  - Rash [Not Recovered/Not Resolved]
  - Product dose omission [Unknown]
  - Nausea [Not Recovered/Not Resolved]
  - Rash generalised [Not Recovered/Not Resolved]
  - Dermatitis atopic [Not Recovered/Not Resolved]
  - Dyspepsia [Not Recovered/Not Resolved]
  - Product dose omission [Unknown]

NARRATIVE: CASE EVENT DATE: 201804
